FAERS Safety Report 9239407 (Version 2)
Quarter: 2013Q2

REPORT INFORMATION
  Report Type: Report from Study
  Country: DE (occurrence: DE)
  Receive Date: 20130418
  Receipt Date: 20130427
  Transmission Date: 20140414
  Serious: Yes (Hospitalization)
  Sender: FDA-Public Use
  Company Number: DE-ROCHE-1204966

PATIENT
  Age: 38 Year
  Sex: Female
  Weight: 59 kg

DRUGS (5)
  1. BEVACIZUMAB [Suspect]
     Indication: BREAST CANCER
     Dosage: LAST DOSE TAKEN ON 22/FEB/2013
     Route: 042
     Dates: start: 20121102
  2. DOXORUBICIN/DOXORUBICIN HYDROCHLORIDE [Suspect]
     Indication: BREAST CANCER
     Dosage: DATE OF LAST DOSE PRIOR TO SAE: 01/MAR/2013
     Route: 042
     Dates: start: 20121102, end: 20130308
  3. DOXORUBICIN/DOXORUBICIN HYDROCHLORIDE [Suspect]
     Route: 042
     Dates: start: 20130325
  4. PACLITAXEL [Suspect]
     Indication: BREAST CANCER
     Dosage: DATE OF LAST DOSE PRIOR TO SAE: 01/MAR/2013
     Route: 042
     Dates: start: 20121102, end: 20130308
  5. PACLITAXEL [Suspect]
     Route: 042
     Dates: start: 20130325

REACTIONS (1)
  - Fluid retention [Recovered/Resolved]
